FAERS Safety Report 15703231 (Version 2)
Quarter: 2018Q4

REPORT INFORMATION
  Report Type: Spontaneous
  Country: DE (occurrence: DE)
  Receive Date: 20181210
  Receipt Date: 20181212
  Transmission Date: 20190205
  Serious: Yes (Hospitalization)
  Sender: FDA-Public Use
  Company Number: DE-TEVA-2018-DE-982558

PATIENT
  Age: 56 Year
  Sex: Male

DRUGS (1)
  1. ALENDRONSAEURE 70 MG [Suspect]
     Active Substance: ALENDRONATE SODIUM
     Dosage: ALREADY PRESCRIBED ON 14-DEC-2016, BUT INTAKE WAS STARTED ON 07-JAN-2017
     Route: 048
     Dates: start: 20170107, end: 20170219

REACTIONS (2)
  - Osteonecrosis of jaw [Not Recovered/Not Resolved]
  - Impaired healing [Not Recovered/Not Resolved]

NARRATIVE: CASE EVENT DATE: 201701
